FAERS Safety Report 19171983 (Version 1)
Quarter: 2021Q2

REPORT INFORMATION
  Report Type: Spontaneous
  Country: US (occurrence: US)
  Receive Date: 20210422
  Receipt Date: 20210422
  Transmission Date: 20210717
  Serious: Yes (Disabling)
  Sender: FDA-Public Use
  Company Number: None

PATIENT
  Age: 54 Year
  Sex: Female

DRUGS (1)
  1. XELJANZ XR [Suspect]
     Active Substance: TOFACITINIB CITRATE
     Dates: start: 20201125, end: 202104

REACTIONS (5)
  - Pain in extremity [None]
  - Neck pain [None]
  - Vasospasm [None]
  - Poor peripheral circulation [None]
  - Heart injury [None]

NARRATIVE: CASE EVENT DATE: 20210411
